FAERS Safety Report 7273555-X (Version None)
Quarter: 2011Q1

REPORT INFORMATION
  Report Type: 
  Country: None (occurrence: None)
  Receive Date: 20110203
  Receipt Date: 20100921
  Transmission Date: 20110831
  Serious: No
  Sender: FDA-Public Use
  Company Number: US-ABBOTT-10P-163-0673017-00

PATIENT
  Sex: Female
  Weight: 49.94 kg

DRUGS (5)
  1. SYNTHROID [Suspect]
     Indication: HYPOTHYROIDISM
     Dates: start: 20091101
  2. ASPIRIN [Concomitant]
     Indication: PRODUCT USED FOR UNKNOWN INDICATION
  3. SYNTHROID [Suspect]
     Dates: start: 19930101
  4. ACEBUTOLOL [Concomitant]
     Indication: ARRHYTHMIA
  5. QUINPRIL [Concomitant]
     Indication: HYPERTENSION

REACTIONS (2)
  - WEIGHT DECREASED [None]
  - DRY MOUTH [None]
